FAERS Safety Report 23132672 (Version 5)
Quarter: 2023Q4

REPORT INFORMATION
  Report Type: Spontaneous
  Country: NL (occurrence: NL)
  Receive Date: 20231101
  Receipt Date: 20231225
  Transmission Date: 20240109
  Serious: Yes (Hospitalization, Other)
  Sender: FDA-Public Use
  Company Number: NL-ABBVIE-5450361

PATIENT
  Age: 76 Year
  Sex: Male

DRUGS (15)
  1. ROPINIROLE HYDROCHLORIDE [Suspect]
     Active Substance: ROPINIROLE HYDROCHLORIDE
     Indication: Product used for unknown indication
     Dosage: FORM STRENGTH: 20 MILLIGRAMFREQUENCY TEXT: AT 7:00 AM
     Route: 065
  2. ROPINIROLE HYDROCHLORIDE [Suspect]
     Active Substance: ROPINIROLE HYDROCHLORIDE
     Dosage: 6 MILLIGRAM
     Route: 065
     Dates: start: 202310
  3. ROPINIROLE HYDROCHLORIDE [Suspect]
     Active Substance: ROPINIROLE HYDROCHLORIDE
     Dosage: 8 MILLIGRAM (PROLONGED-RELEASE TABLET)
     Route: 065
     Dates: start: 202310
  4. CARBIDOPA\LEVODOPA [Suspect]
     Active Substance: CARBIDOPA\LEVODOPA
     Indication: Parkinson^s disease
     Dosage: UNK, MD: 6.5ML, CD: 3.1ML/H, ED: 1.5MLINCREASE IN MORNING DOSE, REMAINS AT 16 HOURS
     Dates: start: 20231019, end: 20231126
  5. CARBIDOPA\LEVODOPA [Suspect]
     Active Substance: CARBIDOPA\LEVODOPA
     Dosage: MD:5,0 ML CD 2,5 ML/H ED 1,5 ML, LAST ADMIN DATE 2023
  6. CARBIDOPA\LEVODOPA [Suspect]
     Active Substance: CARBIDOPA\LEVODOPA
     Dosage: MD:5,0 ML CD 2,5 ML/H ED 1,5 ML
     Dates: start: 20230906
  7. CARBIDOPA\LEVODOPA [Suspect]
     Active Substance: CARBIDOPA\LEVODOPA
     Dosage: INCREASE IN MORNING DOSE, LAST ADMIN DATE 2023UNK
     Dates: start: 20231002
  8. CARBIDOPA\LEVODOPA [Suspect]
     Active Substance: CARBIDOPA\LEVODOPA
     Dosage: UNK, MD: 6.5ML, CD: 3.1ML/H, ED: 1.5MLINCREASE IN MORNING DOSE, REMAINS AT 16 HOURS
     Dates: start: 20231019, end: 20231026
  9. CARBIDOPA\LEVODOPA [Suspect]
     Active Substance: CARBIDOPA\LEVODOPA
     Dosage: UNK, MD: 6.5ML, CD: 3.1ML/H, ED: 1.5MLINCREASE IN MORNING DOSE, REMAINS AT 16 HOURS STOP DATE : OCT
     Route: 045
     Dates: start: 202310
  10. CARBIDOPA\LEVODOPA [Suspect]
     Active Substance: CARBIDOPA\LEVODOPA
     Dosage: UNK, MD: 6.5ML, CD: 3.1ML/H, ED: 1.5MLINCREASE IN MORNING DOSE, REMAINS AT 16 HOURS
     Dates: start: 20231026, end: 20231126
  11. CARBIDOPA\LEVODOPA [Suspect]
     Active Substance: CARBIDOPA\LEVODOPA
     Dosage: UNK, MD: 6.5ML, CD: 3.3ML/H, ED: 1.5MLREMAINS AT 16 HOURS
     Dates: start: 20231126, end: 20231128
  12. CARBIDOPA\LEVODOPA [Suspect]
     Active Substance: CARBIDOPA\LEVODOPA
     Dosage: UNK, MD: 8.5ML, CD: 3.3ML/H, ED: 1.5MLREMAINS AT 16 HOURS
     Dates: start: 20231128
  13. POLYETHYLENE GLYCOLS [Concomitant]
     Active Substance: POLYETHYLENE GLYCOLS
     Indication: Product used for unknown indication
     Dosage: ONCE DAILY 1SACHET IF NECESSARY 2SACHETS
     Route: 065
  14. SINEMET [Concomitant]
     Active Substance: CARBIDOPA\LEVODOPA
     Indication: Product used for unknown indication
     Dosage: 5 DOSAGE FORM, ONCE A DAY
     Route: 065
  15. SINEMET [Concomitant]
     Active Substance: CARBIDOPA\LEVODOPA
     Dosage: 3 DOSAGE FORM, 3 TIMES A DAY
     Route: 065

REACTIONS (45)
  - Hospitalisation [Recovered/Resolved]
  - Parkinson^s disease [Not Recovered/Not Resolved]
  - Syncope [Not Recovered/Not Resolved]
  - Hallucination [Recovered/Resolved]
  - Dyskinesia [Unknown]
  - Back pain [Not Recovered/Not Resolved]
  - On and off phenomenon [Recovered/Resolved]
  - Arthropathy [Not Recovered/Not Resolved]
  - Unevaluable event [Not Recovered/Not Resolved]
  - Salivary hypersecretion [Not Recovered/Not Resolved]
  - Dysuria [Not Recovered/Not Resolved]
  - Dysstasia [Recovering/Resolving]
  - Sitting disability [Recovering/Resolving]
  - Faeces hard [Not Recovered/Not Resolved]
  - Gait disturbance [Recovering/Resolving]
  - Somnolence [Not Recovered/Not Resolved]
  - Cognitive disorder [Not Recovered/Not Resolved]
  - Tension [Recovered/Resolved]
  - Pollakiuria [Not Recovered/Not Resolved]
  - Fall [Not Recovered/Not Resolved]
  - Urinary tract infection [Not Recovered/Not Resolved]
  - Decreased appetite [Not Recovered/Not Resolved]
  - Restlessness [Not Recovered/Not Resolved]
  - Anger [Not Recovered/Not Resolved]
  - Eye movement disorder [Not Recovered/Not Resolved]
  - Grimacing [Not Recovered/Not Resolved]
  - Dyschezia [Recovered/Resolved]
  - Malaise [Not Recovered/Not Resolved]
  - Mobility decreased [Not Recovered/Not Resolved]
  - Joint range of motion decreased [Not Recovered/Not Resolved]
  - Muscle rigidity [Not Recovered/Not Resolved]
  - Tremor [Not Recovered/Not Resolved]
  - Reduced facial expression [Not Recovered/Not Resolved]
  - Mood altered [Not Recovered/Not Resolved]
  - Condom catheter placement [Not Recovered/Not Resolved]
  - Fatigue [Not Recovered/Not Resolved]
  - Bradykinesia [Not Recovered/Not Resolved]
  - Choking [Unknown]
  - Loss of personal independence in daily activities [Not Recovered/Not Resolved]
  - Irritability [Recovered/Resolved]
  - Product dose omission in error [Recovered/Resolved]
  - Device ineffective [Not Recovered/Not Resolved]
  - Drug ineffective [Not Recovered/Not Resolved]
  - Abnormal faeces [Not Recovered/Not Resolved]
  - Diarrhoea [Not Recovered/Not Resolved]

NARRATIVE: CASE EVENT DATE: 20230101
